FAERS Safety Report 23712567 (Version 1)
Quarter: 2024Q2

REPORT INFORMATION
  Report Type: Spontaneous
  Country: MA (occurrence: MA)
  Receive Date: 20240405
  Receipt Date: 20240405
  Transmission Date: 20240717
  Serious: Yes (Death, Life-Threatening, Hospitalization)
  Sender: FDA-Public Use
  Company Number: MA-MYLANLABS-2024M1031047

PATIENT
  Age: 75 Year

DRUGS (1)
  1. METHOTREXATE [Suspect]
     Active Substance: METHOTREXATE
     Indication: Rheumatoid arthritis
     Dosage: 12.5 MICROGRAM, QW
     Route: 065

REACTIONS (4)
  - Interstitial lung disease [Fatal]
  - Cardiac failure acute [Fatal]
  - Acute respiratory failure [Fatal]
  - Pulmonary hypertension [Unknown]
